FAERS Safety Report 10072006 (Version 1)
Quarter: 2014Q2

REPORT INFORMATION
  Report Type: Spontaneous
  Country: US (occurrence: US)
  Receive Date: 20140411
  Receipt Date: 20140411
  Transmission Date: 20141212
  Serious: No
  Sender: FDA-Public Use
  Company Number: US-US-EMD SERONO, INC.-7281406

PATIENT
  Age: 54 Year
  Sex: Male
  Weight: 75 kg

DRUGS (2)
  1. REBIF [Suspect]
     Indication: MULTIPLE SCLEROSIS
     Route: 058
  2. PEPCID                             /00706001/ [Concomitant]
     Indication: PRODUCT USED FOR UNKNOWN INDICATION
     Route: 048

REACTIONS (21)
  - Central nervous system lesion [Unknown]
  - Optic atrophy [Unknown]
  - Cognitive disorder [Unknown]
  - Nocturia [Unknown]
  - Reflexes abnormal [Unknown]
  - Limb discomfort [Unknown]
  - Feeling abnormal [Unknown]
  - Feeling abnormal [Unknown]
  - Dyskinesia [Unknown]
  - Hoffmann^s sign [Unknown]
  - Gait spastic [Unknown]
  - Drug intolerance [Unknown]
  - Gait disturbance [Unknown]
  - Gait disturbance [Unknown]
  - Joint stiffness [Unknown]
  - Vision blurred [Unknown]
  - Back pain [Unknown]
  - Muscle tightness [Unknown]
  - Musculoskeletal stiffness [Unknown]
  - Fatigue [Unknown]
  - Fatigue [Unknown]
